FAERS Safety Report 8618037 (Version 2)
Quarter: 2012Q4

REPORT INFORMATION
  Report Type: Spontaneous
  Country: US (occurrence: None)
  Receive Date: 20120529
  Receipt Date: 20120816
  Transmission Date: 20130627
  Serious: Yes (Hospitalization)
  Sender: FDA-Public Use
  Company Number: 2012PROUSA01447

PATIENT
  Age: 68 Year
  Sex: Male

DRUGS (20)
  1. PROVENGE [Suspect]
     Indication: PROSTATE CANCER METASTATIC
     Dosage: 250 ML, SINGLE, INTRAVENOUS
     Route: 042
     Dates: start: 20120427, end: 20120427
  2. PROVENGE [Suspect]
     Indication: PROSTATE CANCER METASTATIC
     Dosage: 250 ML, SINGLE, INTRAVENOUS
     Route: 042
     Dates: start: 20120511, end: 20120511
  3. MEGACE (MEGESTROL ACETATE) [Concomitant]
  4. COMPAZINE (PROCHLORPERAZINE MALEATE) [Concomitant]
  5. DIPHENHYDRAMINE HCL (DIPHENHYDRAMINE HYDROCHLORIDE) [Concomitant]
  6. ACETAMINOPHEN (PARACETAMOL),ACETYLSAL ACID,CAFFEINE CITRATE [Concomitant]
  7. TRELSTAR LA (TRIPTORELIN EMBONATE) [Concomitant]
  8. POTASSIUM CHLORIDE (POTASSIUM CHLORIDE) [Concomitant]
  9. METOPROLOL SUCCINATE (METOPROLOL SUCCINATE) [Concomitant]
  10. LEVOTHYROXINE SODIUM (LEVOTHYROXINE SODIUM) [Concomitant]
  11. LISINOPRIL AND HYDROCHLOROTHIAZIDE (HYDROCHLOROTHIAZIDE, LISINOPRIL) [Concomitant]
  12. FEXOFENADINE HYDROCHLORIDE (FEXOFENADINE HYDROCHLORIDE) [Concomitant]
  13. ADVIL (IBUPROFEN) [Concomitant]
  14. ACIDOPHILUS (LACTOBACILLUS ACIDOPHILUS) [Concomitant]
  15. LIPITOR (ATORVASTATIN CALCIUM) [Concomitant]
  16. FLONASE (FLUTICASONE PROPIONATE) [Concomitant]
  17. ASPIRIN (ACETYLSALICYLIC ACID) [Concomitant]
  18. METFORMIN HYDROCHLORIDE (METFORMIN HYDROCHLORIDE) [Concomitant]
  19. CASODEX (BICALUTAMIDE) [Concomitant]
  20. ZOMETA (ZOLEDRONIC ACID) [Concomitant]

REACTIONS (22)
  - Cerebrovascular accident [None]
  - Hyponatraemia [None]
  - Metastases to bone [None]
  - Malignant neoplasm progression [None]
  - Prostatic specific antigen increased [None]
  - Pyrexia [None]
  - Joint swelling [None]
  - Weight decreased [None]
  - Decreased appetite [None]
  - Anaemia [None]
  - Dehydration [None]
  - Mental status changes [None]
  - Tremor [None]
  - Nausea [None]
  - Dyspnoea [None]
  - Blood pressure diastolic increased [None]
  - Hemiparesis [None]
  - Osteosclerosis [None]
  - Fatigue [None]
  - White blood cell count increased [None]
  - Sepsis [None]
  - Monoplegia [None]
